FAERS Safety Report 18476192 (Version 1)
Quarter: 2020Q4

REPORT INFORMATION
  Report Type: Spontaneous
  Country: JP (occurrence: JP)
  Receive Date: 20201106
  Receipt Date: 20201106
  Transmission Date: 20210114
  Serious: Yes (Other)
  Sender: FDA-Public Use
  Company Number: JP-PAIPHARMA-2020-JP-000395

PATIENT
  Age: 85 Year
  Sex: Female

DRUGS (3)
  1. DEXAMETHASONE. [Concomitant]
     Active Substance: DEXAMETHASONE
  2. GLYCEROL [Concomitant]
     Active Substance: GLYCERIN
  3. LEVETIRACETAM (NON-SPECIFIC) [Suspect]
     Active Substance: LEVETIRACETAM
     Indication: SEIZURE

REACTIONS (1)
  - Interstitial lung disease [Unknown]
